FAERS Safety Report 25439612 (Version 1)
Quarter: 2025Q2

REPORT INFORMATION
  Report Type: Spontaneous
  Country: US (occurrence: None)
  Receive Date: 20250613
  Receipt Date: 20250613
  Transmission Date: 20250717
  Serious: Yes (unspecified)
  Sender: FDA-CTU
  Company Number: None

PATIENT
  Age: 39 Year
  Sex: Male
  Weight: 81 kg

DRUGS (9)
  1. CABTREO [Suspect]
     Active Substance: ADAPALENE\BENZOYL PEROXIDE\CLINDAMYCIN PHOSPHATE
     Indication: Acne
     Dosage: OTHER QUANTITY : 1 PEA SIZED AMOUNT;?FREQUENCY : DAILY;?
     Route: 061
     Dates: start: 20250609, end: 20250612
  2. ADVIL [Concomitant]
     Active Substance: IBUPROFEN
  3. I-thiamine [Concomitant]
  4. CREATINE [Concomitant]
     Active Substance: CREATINE
  5. VITAMIN D [Concomitant]
     Active Substance: VITAMIN D NOS
  6. ZINC [Concomitant]
     Active Substance: ZINC
  7. QUERCETIN [Concomitant]
     Active Substance: QUERCETIN
  8. ZYRTEC [Suspect]
     Active Substance: CETIRIZINE HYDROCHLORIDE
  9. PATADAY [Concomitant]
     Active Substance: OLOPATADINE HYDROCHLORIDE

REACTIONS (5)
  - Eye irritation [None]
  - Swelling of eyelid [None]
  - Eyelids pruritus [None]
  - Eyelid pain [None]
  - Hypersensitivity [None]

NARRATIVE: CASE EVENT DATE: 20250611
